FAERS Safety Report 26151210 (Version 2)
Quarter: 2025Q4

REPORT INFORMATION
  Report Type: Report from Study
  Country: US (occurrence: US)
  Receive Date: 20251212
  Receipt Date: 20251222
  Transmission Date: 20260117
  Serious: Yes (Hospitalization)
  Sender: CSL BEHRING
  Company Number: US-BEH-2025228778

PATIENT
  Age: 80 Year
  Sex: Female
  Weight: 48.63 kg

DRUGS (2)
  1. HIZENTRA [Suspect]
     Active Substance: HUMAN IMMUNOGLOBULIN G
     Indication: IgG deficiency
     Dosage: UNK
     Route: 065
  2. HIZENTRA [Suspect]
     Active Substance: HUMAN IMMUNOGLOBULIN G
     Indication: Immunodeficiency
     Dosage: 20 G, BIW
     Route: 058
     Dates: start: 20251023

REACTIONS (3)
  - Visual impairment [Not Recovered/Not Resolved]
  - Eye infection [Recovering/Resolving]
  - Corneal disorder [Recovering/Resolving]

NARRATIVE: CASE EVENT DATE: 20251023
